FAERS Safety Report 5831072-5 (Version None)
Quarter: 2008Q3

REPORT INFORMATION
  Report Type: 
  Country: None (occurrence: None)
  Receive Date: 20080801
  Receipt Date: 20080325
  Transmission Date: 20090109
  Serious: No
  Sender: FDA-Public Use
  Company Number: US-BRISTOL-MYERS SQUIBB COMPANY-14126163

PATIENT
  Age: 66 Year
  Sex: Male
  Weight: 60 kg

DRUGS (10)
  1. COUMADIN [Suspect]
     Dosage: DOSE= 5MG,5D/WK + 2.5MG,2D/WK;STOPPED FROM 11-14MAR08;RESTARTED 15MAR08;DOSE INCREASED ON17MAR08
     Dates: start: 19931201
  2. IMDUR [Concomitant]
  3. NORVASC [Concomitant]
  4. CARDURA [Concomitant]
  5. TOPROL-XL [Concomitant]
  6. COREG [Concomitant]
  7. VYTORIN [Concomitant]
  8. ATIVAN [Concomitant]
  9. FOLIC ACID [Concomitant]
  10. ANUCORT-HC [Concomitant]

REACTIONS (2)
  - INTERNATIONAL NORMALISED RATIO INCREASED [None]
  - WEIGHT DECREASED [None]
